FAERS Safety Report 6856120-5 (Version None)
Quarter: 2010Q3

REPORT INFORMATION
  Report Type: 
  Country: None (occurrence: None)
  Receive Date: 20100719
  Receipt Date: 20100706
  Transmission Date: 20110219
  Serious: Yes (Hospitalization)
  Sender: FDA-Public Use
  Company Number: PHHY2009BE09504

PATIENT
  Sex: Female
  Weight: 26 kg

DRUGS (5)
  1. EXJADE [Suspect]
     Indication: IRON OVERLOAD
     Dosage: 675 MG, QD
     Route: 048
     Dates: start: 20030814
  2. EXJADE [Suspect]
     Indication: THALASSAEMIA BETA
     Dosage: UNK
     Dates: start: 20090512
  3. EXJADE [Suspect]
     Dosage: 625 MG, DAILY
     Route: 048
  4. FOLIC ACID [Concomitant]
     Indication: THALASSAEMIA BETA
     Dosage: 1 MG DAILY
     Route: 048
  5. BLOOD TRANSFUSION, AUXILIARY PRODUCTS [Concomitant]

REACTIONS (10)
  - ABDOMINAL PAIN UPPER [None]
  - BLOOD PHOSPHORUS DECREASED [None]
  - BLOOD UREA INCREASED [None]
  - DECREASED APPETITE [None]
  - FAECES DISCOLOURED [None]
  - GASTRIC ULCER [None]
  - HAEMATEMESIS [None]
  - HAEMOGLOBIN DECREASED [None]
  - HEPATOMEGALY [None]
  - NAUSEA [None]
